FAERS Safety Report 9108191 (Version 1)
Quarter: 2013Q1

REPORT INFORMATION
  Report Type: Spontaneous
  Country: GB (occurrence: GB)
  Receive Date: 20130221
  Receipt Date: 20130221
  Transmission Date: 20140127
  Serious: Yes (Death, Other)
  Sender: FDA-Public Use
  Company Number: GB-PFIZER INC-2013061523

PATIENT
  Age: 60 Year
  Sex: Male
  Weight: 77 kg

DRUGS (30)
  1. GEMCITABINE [Suspect]
     Indication: NON-SMALL CELL LUNG CANCER STAGE IIIA
     Dosage: 2500MG, UNK
     Route: 042
     Dates: start: 20120806, end: 20121015
  2. ACYCLOVIR [Concomitant]
     Dosage: 700 MG, 3X/DAY
     Route: 042
  3. AMIODARONE [Concomitant]
     Dosage: 300MG, 1/1HOURS
  4. CARBOCISTEINE [Concomitant]
     Dosage: 750 MG, 3X/DAY
  5. CARBOPLATIN [Concomitant]
     Indication: NON-SMALL CELL LUNG CANCER STAGE IIIA
     Dosage: 570MG, UNK
     Route: 042
  6. CASPOFUNGIN [Concomitant]
     Dosage: 50 MG, 1X/DAY
     Route: 042
  7. CLARITHROMYCIN [Concomitant]
     Dosage: 500 MG, 2X/DAY
     Route: 042
  8. AMOXICILLIN\CLAVULANATE POTASSIUM [Concomitant]
     Dosage: 625 MG, 3X/DAY
     Dates: start: 20130110
  9. CO-CODAMOL [Concomitant]
     Dosage: 2 DF, 4X/DAY
  10. CO-TRIMOXAZOLE [Concomitant]
     Dosage: 2.4 G, 4X/DAY
     Route: 042
     Dates: start: 20130117
  11. DALTEPARIN [Concomitant]
     Dosage: 5000 IU, 1X/DAY
     Route: 058
  12. DIAMORPHINE [Concomitant]
  13. EPOPROSTENOL [Concomitant]
  14. FENTANYL [Concomitant]
  15. FUROSEMIDE [Concomitant]
     Dosage: 40 MG, UNK
     Route: 042
  16. GAVISCON [Concomitant]
  17. HYDROCORTISONE [Concomitant]
     Dosage: 200 MG, 3X/DAY
     Route: 042
  18. LANSOPRAZOLE [Concomitant]
     Dosage: 15 MG, 1X/DAY
  19. MEROPENEM [Concomitant]
     Dosage: 1 G, 2X/DAY
     Route: 042
  20. MIDAZOLAM [Concomitant]
  21. MORPHINE SULFATE [Concomitant]
     Dosage: 10MG, UNK
  22. NAPROXEN [Concomitant]
     Dosage: 250 MG, 3X/DAY
  23. NORADRENALINE [Concomitant]
  24. NORMAL SALINE [Concomitant]
  25. NYSTATIN [Concomitant]
     Dosage: 1 ML, 4X/DAY
  26. PROPOFOL [Concomitant]
  27. SALBUTAMOL [Concomitant]
     Dosage: 100 MCG, UNK
     Route: 055
  28. TAZOCIN [Concomitant]
     Dosage: 4.5 G, 3X/DAY
     Route: 042
  29. TIOTROPIUM [Concomitant]
     Dosage: 18 UG, 1X/DAY
     Route: 055
     Dates: start: 20120806, end: 20121015
  30. ESOMEPRAZOLE [Concomitant]
     Dosage: 40 MG, 1X/DAY
     Route: 042

REACTIONS (9)
  - Pulmonary fibrosis [Fatal]
  - Renal failure acute [Not Recovered/Not Resolved]
  - Pneumonia [Not Recovered/Not Resolved]
  - Lower respiratory tract infection [Not Recovered/Not Resolved]
  - Dyspnoea exertional [Not Recovered/Not Resolved]
  - Haemoptysis [Not Recovered/Not Resolved]
  - Dyspnoea [Not Recovered/Not Resolved]
  - Productive cough [Not Recovered/Not Resolved]
  - Thrombocytopenia [Not Recovered/Not Resolved]
